FAERS Safety Report 7691267-5 (Version None)
Quarter: 2011Q3

REPORT INFORMATION
  Report Type: 
  Country: None (occurrence: None)
  Receive Date: 20110815
  Receipt Date: 20110803
  Transmission Date: 20111222
  Serious: Yes (Death, Other)
  Sender: FDA-Public Use
  Company Number: 120877

PATIENT
  Age: 21 Year
  Sex: Male

DRUGS (1)
  1. KETAMINE HCL [Suspect]
     Indication: PRODUCT USED FOR UNKNOWN INDICATION

REACTIONS (3)
  - MEDICATION ERROR [None]
  - PULMONARY OEDEMA [None]
  - TOXICITY TO VARIOUS AGENTS [None]
